FAERS Safety Report 11527400 (Version 1)
Quarter: 2015Q3

REPORT INFORMATION
  Report Type: Spontaneous
  Country: US (occurrence: US)
  Receive Date: 20150903
  Receipt Date: 20150903
  Transmission Date: 20151125
  Serious: No
  Sender: FDA-Public Use
  Company Number: US-ELI_LILLY_AND_COMPANY-US200907001275

PATIENT
  Sex: Male

DRUGS (4)
  1. LANTUS SOLOSTAR [Concomitant]
     Active Substance: INSULIN GLARGINE
     Dosage: 45 U, UNK
     Route: 058
     Dates: start: 2008
  2. HUMALOG [Suspect]
     Active Substance: INSULIN LISPRO
  3. MORPHINE [Concomitant]
     Active Substance: MORPHINE
  4. VITAMIN B [Concomitant]
     Active Substance: VITAMIN B

REACTIONS (3)
  - Blood glucose increased [Unknown]
  - Hunger [Unknown]
  - Blood glucose decreased [Recovered/Resolved]
